FAERS Safety Report 8178099-9 (Version None)
Quarter: 2012Q1

REPORT INFORMATION
  Report Type: 
  Country: None (occurrence: None)
  Receive Date: 20120301
  Receipt Date: 20120221
  Transmission Date: 20120608
  Serious: Yes (Hospitalization, Other)
  Sender: FDA-Public Use
  Company Number: US-BAYER-2012-018553

PATIENT
  Age: 34 Year
  Sex: Female

DRUGS (7)
  1. SYNTHROID [Concomitant]
     Dosage: 200 MCG/24HR, ONCE
  2. MULTI-VITAMIN [Concomitant]
     Dosage: UNK UNK, ONCE
  3. TRICOR [Concomitant]
     Dosage: 145 MG, HS
  4. YASMIN [Suspect]
     Dosage: UNK
  5. CALCIUM [Concomitant]
     Dosage: 4 G, ONCE
  6. DROSPIRENONE AND ETHINYL ESTRADIOL [Suspect]
     Dosage: UNK
  7. FOLATE SODIUM [Concomitant]
     Dosage: 400 MG, ONCE

REACTIONS (3)
  - VENA CAVA THROMBOSIS [None]
  - PELVIC VENOUS THROMBOSIS [None]
  - DEEP VEIN THROMBOSIS [None]
